FAERS Safety Report 9234299 (Version 1)
Quarter: 2013Q2

REPORT INFORMATION
  Report Type: Spontaneous
  Country: US (occurrence: US)
  Receive Date: 20130416
  Receipt Date: 20130416
  Transmission Date: 20140414
  Serious: Yes (Hospitalization)
  Sender: FDA-Public Use
  Company Number: US-GILEAD-2013-0073430

PATIENT
  Sex: Female

DRUGS (4)
  1. LETAIRIS [Suspect]
     Indication: PRODUCT USED FOR UNKNOWN INDICATION
     Dosage: 10 MG, QD
     Route: 048
     Dates: start: 20111206
  2. ADCIRCA [Concomitant]
  3. REMODULIN [Concomitant]
  4. WARFARIN [Concomitant]

REACTIONS (2)
  - Catheterisation cardiac [Unknown]
  - Unevaluable event [Unknown]
